FAERS Safety Report 21099355 (Version 2)
Quarter: 2022Q3

REPORT INFORMATION
  Report Type: Report from Study
  Country: US (occurrence: US)
  Receive Date: 20220719
  Receipt Date: 20220729
  Transmission Date: 20221026
  Serious: Yes (Other)
  Sender: FDA-Public Use
  Company Number: US-TEVA-2022-US-2052338

PATIENT
  Sex: Female

DRUGS (3)
  1. INDOMETHACIN [Suspect]
     Active Substance: INDOMETHACIN
     Indication: Tocolysis
     Route: 064
  2. INDOMETHACIN [Suspect]
     Active Substance: INDOMETHACIN
     Dosage: 200 MILLIGRAM DAILY; 50MG EVERY 6H FOR UP TO 48HOURS
     Route: 064
  3. INDOMETHACIN [Suspect]
     Active Substance: INDOMETHACIN
     Dosage: 100 MILLIGRAM DAILY; MAINTENANCE DOSE OF 25MG EVERY 6H
     Route: 064

REACTIONS (3)
  - Oligohydramnios [Recovered/Resolved]
  - Maternal exposure during pregnancy [Unknown]
  - Live birth [Unknown]
